FAERS Safety Report 7247060-0 (Version None)
Quarter: 2011Q1

REPORT INFORMATION
  Report Type: 
  Country: None (occurrence: None)
  Receive Date: 20110127
  Receipt Date: 20101214
  Transmission Date: 20110831
  Serious: Yes (Death, Life-Threatening, Other)
  Sender: FDA-Public Use
  Company Number: US-BAXTER-2010BH007848

PATIENT
  Age: 73 Year
  Sex: Female
  Weight: 60 kg

DRUGS (54)
  1. HEPARIN SODIUM INJECTION [Suspect]
     Route: 042
     Dates: start: 20080215, end: 20080215
  2. HYDROMORPHONE [Concomitant]
     Indication: PRODUCT USED FOR UNKNOWN INDICATION
     Route: 065
  3. FERRIC SODIUM GLUCONATE COMPLEX [Concomitant]
     Indication: ANAEMIA
     Route: 042
  4. ZYVOX [Concomitant]
     Indication: PRODUCT USED FOR UNKNOWN INDICATION
     Route: 042
  5. RENAGEL [Concomitant]
     Indication: PRODUCT USED FOR UNKNOWN INDICATION
     Route: 065
  6. HEPARIN SODIUM INJECTION [Suspect]
     Indication: INTRAVENOUS CATHETER MANAGEMENT
     Route: 010
     Dates: start: 20071101, end: 20080301
  7. HEPARIN SODIUM INJECTION [Suspect]
     Route: 010
     Dates: start: 20080310, end: 20080310
  8. HEPARIN SODIUM INJECTION [Suspect]
     Route: 042
     Dates: start: 20080215, end: 20080215
  9. LANTUS [Concomitant]
     Indication: PRODUCT USED FOR UNKNOWN INDICATION
     Route: 058
  10. XENADERM [Concomitant]
     Indication: ULCER
     Route: 061
  11. NOVOLOG [Concomitant]
     Indication: PRODUCT USED FOR UNKNOWN INDICATION
     Route: 058
  12. HEPARIN SODIUM INJECTION [Suspect]
     Route: 010
     Dates: start: 20080225, end: 20080229
  13. HEPARIN SODIUM INJECTION [Suspect]
     Route: 010
     Dates: start: 20080225, end: 20080229
  14. LEVOTHYROXINE SODIUM [Concomitant]
     Indication: PRODUCT USED FOR UNKNOWN INDICATION
     Route: 065
  15. VITAMINS, OTHER COMBINATIONS [Concomitant]
     Indication: PRODUCT USED FOR UNKNOWN INDICATION
     Route: 065
  16. ALBUTEROL [Concomitant]
     Indication: PRODUCT USED FOR UNKNOWN INDICATION
     Route: 065
  17. ACCUZYME [Concomitant]
     Indication: ULCER
     Route: 061
  18. EPOETIN ALFA [Concomitant]
     Indication: PRODUCT USED FOR UNKNOWN INDICATION
     Route: 058
  19. BACITRACIN [Concomitant]
     Indication: EXCORIATION
     Route: 061
  20. HEPARIN SODIUM INJECTION [Suspect]
     Indication: HAEMODIALYSIS
     Route: 010
     Dates: start: 20071101, end: 20080301
  21. PANTOPRAZOLE [Concomitant]
     Indication: PRODUCT USED FOR UNKNOWN INDICATION
     Route: 048
  22. PREDNISONE [Concomitant]
     Indication: PRODUCT USED FOR UNKNOWN INDICATION
     Route: 048
  23. TUSSIONEX [Concomitant]
     Indication: PRODUCT USED FOR UNKNOWN INDICATION
     Route: 065
  24. ROCEPHIN [Concomitant]
     Indication: PRODUCT USED FOR UNKNOWN INDICATION
     Route: 065
  25. HEPARIN SODIUM INJECTION [Suspect]
     Route: 010
     Dates: start: 20080310, end: 20080310
  26. HEPARIN SODIUM INJECTION [Suspect]
     Route: 010
     Dates: start: 20071105, end: 20080115
  27. HEPARIN SODIUM INJECTION [Suspect]
     Route: 010
     Dates: start: 20071105, end: 20080115
  28. HEPARIN SODIUM INJECTION [Suspect]
     Route: 010
     Dates: start: 20080305, end: 20080305
  29. HEPARIN SODIUM INJECTION [Suspect]
     Route: 010
     Dates: start: 20080204, end: 20080221
  30. CASPOFUNGIN [Concomitant]
     Indication: PRODUCT USED FOR UNKNOWN INDICATION
     Route: 065
  31. MUPIROCIN [Concomitant]
     Indication: PRODUCT USED FOR UNKNOWN INDICATION
     Route: 065
  32. LOMOTIL [Concomitant]
     Indication: DIARRHOEA
     Route: 065
  33. VANCOMYCIN [Concomitant]
     Indication: PRODUCT USED FOR UNKNOWN INDICATION
     Route: 065
  34. LISINOPRIL [Concomitant]
     Indication: PRODUCT USED FOR UNKNOWN INDICATION
     Route: 065
  35. BENAZEPRIL HYDROCHLORIDE [Concomitant]
     Indication: PRODUCT USED FOR UNKNOWN INDICATION
     Route: 048
  36. NIFEREX [Concomitant]
     Indication: PRODUCT USED FOR UNKNOWN INDICATION
     Route: 065
  37. LOVENOX [Concomitant]
     Indication: PRODUCT USED FOR UNKNOWN INDICATION
     Route: 058
  38. SILVADENE [Concomitant]
     Indication: PRODUCT USED FOR UNKNOWN INDICATION
     Route: 065
  39. KAYEXALATE [Concomitant]
     Route: 048
  40. CLOTRIMAZOLE [Concomitant]
     Indication: PRODUCT USED FOR UNKNOWN INDICATION
     Route: 065
  41. ZOSYN [Concomitant]
     Indication: PRODUCT USED FOR UNKNOWN INDICATION
     Route: 042
  42. GENTAMICIN [Concomitant]
     Indication: PRODUCT USED FOR UNKNOWN INDICATION
     Route: 065
  43. HEPARIN SODIUM INJECTION [Suspect]
     Route: 010
     Dates: start: 20080305, end: 20080305
  44. HEPARIN SODIUM INJECTION [Suspect]
     Route: 010
     Dates: start: 20080204, end: 20080221
  45. FLUCONAZOLE [Concomitant]
     Indication: PRODUCT USED FOR UNKNOWN INDICATION
     Route: 042
  46. PRIMAXIN [Concomitant]
     Indication: SEPSIS
     Route: 042
  47. SIMETHICONE [Concomitant]
     Indication: PRODUCT USED FOR UNKNOWN INDICATION
     Route: 065
  48. CALCIUM [Concomitant]
     Indication: PRODUCT USED FOR UNKNOWN INDICATION
     Route: 065
  49. HECTOROL [Concomitant]
     Indication: HYPERPARATHYROIDISM
     Route: 042
  50. LEVAQUIN [Concomitant]
     Indication: PRODUCT USED FOR UNKNOWN INDICATION
     Route: 048
  51. METOPROLOL [Concomitant]
     Indication: PRODUCT USED FOR UNKNOWN INDICATION
     Route: 065
  52. PENICILLIN V [Concomitant]
     Indication: PRODUCT USED FOR UNKNOWN INDICATION
     Route: 065
  53. LORAZEPAM [Concomitant]
     Indication: PRODUCT USED FOR UNKNOWN INDICATION
     Route: 065
  54. KAYEXALATE [Concomitant]
     Indication: PRODUCT USED FOR UNKNOWN INDICATION
     Route: 048

REACTIONS (22)
  - CARDIAC ARREST [None]
  - UNRESPONSIVE TO STIMULI [None]
  - HYPOTENSION [None]
  - DYSPHAGIA [None]
  - NAUSEA [None]
  - ANXIETY [None]
  - VOMITING [None]
  - FLUSHING [None]
  - DECREASED APPETITE [None]
  - DIARRHOEA [None]
  - SYSTEMIC CANDIDA [None]
  - CARDIOMYOPATHY [None]
  - RASH [None]
  - CELLULITIS [None]
  - MULTI-ORGAN FAILURE [None]
  - INFECTION SUSCEPTIBILITY INCREASED [None]
  - SEPSIS [None]
  - THROMBOCYTOPENIA [None]
  - GANGRENE [None]
  - RENAL FAILURE CHRONIC [None]
  - SUBDURAL HAEMORRHAGE [None]
  - RECTAL HAEMORRHAGE [None]
